FAERS Safety Report 16170280 (Version 1)
Quarter: 2019Q2

REPORT INFORMATION
  Report Type: Spontaneous
  Country: ES (occurrence: ES)
  Receive Date: 20190408
  Receipt Date: 20190408
  Transmission Date: 20190711
  Serious: Yes (Death, Other)
  Sender: FDA-Public Use
  Company Number: ES-JNJFOC-20190317531

PATIENT
  Age: 83 Year
  Sex: Female
  Weight: 40 kg

DRUGS (1)
  1. DOXORUBICIN [Suspect]
     Active Substance: DOXORUBICIN
     Indication: OVARIAN EPITHELIAL CANCER
     Dosage: EACH 28 DAY
     Route: 042
     Dates: start: 20170306, end: 20170406

REACTIONS (6)
  - Fatigue [Unknown]
  - Diarrhoea [Recovering/Resolving]
  - Alopecia [Unknown]
  - Asthenia [Unknown]
  - Ovarian cancer [Unknown]
  - Death [Fatal]

NARRATIVE: CASE EVENT DATE: 2017
